FAERS Safety Report 7535049-3 (Version None)
Quarter: 2011Q2

REPORT INFORMATION
  Report Type: 
  Country: None (occurrence: None)
  Receive Date: 20110609
  Receipt Date: 20110531
  Transmission Date: 20111010
  Serious: No
  Sender: FDA-Public Use
  Company Number: US-BIOGENIDEC-2011BI020259

PATIENT
  Age: 45 Year
  Sex: Female

DRUGS (2)
  1. TYSABRI [Suspect]
     Indication: MULTIPLE SCLEROSIS
     Route: 042
     Dates: start: 20090715
  2. MEDICATIONS (NOS) [Concomitant]
     Indication: NAUSEA

REACTIONS (5)
  - SKELETAL INJURY [None]
  - JOINT SPRAIN [None]
  - DECREASED APPETITE [None]
  - FOOT FRACTURE [None]
  - FATIGUE [None]
